FAERS Safety Report 13643579 (Version 4)
Quarter: 2017Q3

REPORT INFORMATION
  Report Type: Report from Study
  Country: JP (occurrence: JP)
  Receive Date: 20170612
  Receipt Date: 20170803
  Transmission Date: 20171127
  Serious: Yes (Hospitalization, Other)
  Sender: FDA-Public Use
  Company Number: JP-GILEAD-2017-0275558

PATIENT
  Age: 73 Year
  Sex: Female
  Weight: 64.7 kg

DRUGS (28)
  1. RIFAXIMIN [Concomitant]
     Active Substance: RIFAXIMIN
     Dosage: 400 MG, UNK
     Route: 048
  2. LACTULOSE. [Concomitant]
     Active Substance: LACTULOSE
     Indication: HEPATIC ENCEPHALOPATHY
     Route: 048
     Dates: start: 20170420
  3. POLAPREZINC [Concomitant]
     Active Substance: POLAPREZINC
     Route: 048
  4. SOFOSBUVIR W/VELPATASVIR [Suspect]
     Active Substance: SOFOSBUVIR\VELPATASVIR
     Indication: CHRONIC HEPATITIS C
     Dosage: 1 DF, QD
     Route: 048
     Dates: start: 20170419
  5. POLAPREZINC [Concomitant]
     Active Substance: POLAPREZINC
     Route: 048
  6. HEPAN ED [Concomitant]
     Active Substance: AMINO ACIDS\VITAMINS
     Route: 048
  7. RIFAXIMIN [Concomitant]
     Active Substance: RIFAXIMIN
     Route: 048
  8. NEUROTROPIN                        /00398601/ [Concomitant]
     Active Substance: CYANOCOBALAMIN\LIDOCAINE HYDROCHLORIDE\PYRIDOXINE HYDROCHLORIDE\THIAMINE HYDROCHLORIDE
     Indication: TENDON DISORDER
  9. RIFAXIMIN [Concomitant]
     Active Substance: RIFAXIMIN
     Dosage: 400 MG, UNK
     Route: 048
  10. POLAPREZINC [Concomitant]
     Active Substance: POLAPREZINC
     Indication: PROPHYLAXIS AGAINST GASTROINTESTINAL ULCER
     Route: 048
  11. HEPAN ED [Concomitant]
     Active Substance: AMINO ACIDS\VITAMINS
     Indication: HEPATIC ENCEPHALOPATHY
     Route: 048
     Dates: start: 20170215
  12. HEPAN ED [Concomitant]
     Active Substance: AMINO ACIDS\VITAMINS
     Route: 048
  13. RIFAXIMIN [Concomitant]
     Active Substance: RIFAXIMIN
     Route: 048
  14. AMINOLEBAN                         /01982601/ [Concomitant]
     Active Substance: AMINO ACIDS
     Indication: HEPATIC ENCEPHALOPATHY
     Dosage: 500 ML, UNK
     Route: 042
     Dates: end: 20170711
  15. POLAPREZINC [Concomitant]
     Active Substance: POLAPREZINC
     Route: 048
  16. PREGABALIN. [Concomitant]
     Active Substance: PREGABALIN
     Indication: TENDON DISORDER
  17. POLAPREZINC [Concomitant]
     Active Substance: POLAPREZINC
     Route: 048
  18. ESOMEPRAZOLE MAGNESIUM. [Concomitant]
     Active Substance: ESOMEPRAZOLE MAGNESIUM
     Route: 048
     Dates: start: 20170329
  19. HEPAN ED [Concomitant]
     Active Substance: AMINO ACIDS\VITAMINS
     Indication: NUTRITIONAL SUPPLEMENTATION
     Route: 048
  20. HEPAN ED [Concomitant]
     Active Substance: AMINO ACIDS\VITAMINS
     Route: 048
  21. RIFAXIMIN [Concomitant]
     Active Substance: RIFAXIMIN
     Indication: HEPATIC ENCEPHALOPATHY
     Dosage: 400 MG, UNK
     Route: 048
  22. RIFAXIMIN [Concomitant]
     Active Substance: RIFAXIMIN
     Route: 048
  23. POLAPREZINC [Concomitant]
     Active Substance: POLAPREZINC
     Route: 048
  24. SODIUM FERRIC CITRATE [Concomitant]
     Active Substance: FERRIC SODIUM CITRATE
     Indication: ANAEMIA
     Dosage: UNK
     Route: 048
     Dates: start: 20170301
  25. SODIUM FERRIC CITRATE [Concomitant]
     Active Substance: FERRIC SODIUM CITRATE
     Route: 048
     Dates: start: 20170301
  26. ESOMEPRAZOLE MAGNESIUM. [Concomitant]
     Active Substance: ESOMEPRAZOLE MAGNESIUM
     Indication: PROPHYLAXIS AGAINST GASTROINTESTINAL ULCER
     Dosage: UNK
     Route: 048
     Dates: start: 20170329
  27. PREGABALIN. [Concomitant]
     Active Substance: PREGABALIN
     Indication: OSTEOARTHRITIS
     Route: 048
     Dates: start: 20170414
  28. NEUROTROPIN                        /00398601/ [Concomitant]
     Active Substance: CYANOCOBALAMIN\LIDOCAINE HYDROCHLORIDE\PYRIDOXINE HYDROCHLORIDE\THIAMINE HYDROCHLORIDE
     Indication: OSTEOARTHRITIS
     Dosage: UNK
     Route: 048
     Dates: start: 20170414

REACTIONS (1)
  - Gastric cancer [Recovered/Resolved]

NARRATIVE: CASE EVENT DATE: 20170530
